FAERS Safety Report 8073116-9 (Version None)
Quarter: 2012Q1

REPORT INFORMATION
  Report Type: 
  Country: None (occurrence: None)
  Receive Date: 20120126
  Receipt Date: 20120119
  Transmission Date: 20120608
  Serious: Yes (Hospitalization, Disabling)
  Sender: FDA-Public Use
  Company Number: CH-NOVOPROD-339541

PATIENT
  Age: 41 Year
  Sex: Male
  Weight: 76 kg

DRUGS (3)
  1. INSPRA                             /01362602/ [Concomitant]
     Indication: PROPHYLAXIS
     Dosage: 1.5 TABLETS OF 25 MG
     Route: 048
  2. NOVORAPID [Suspect]
     Indication: TYPE 1 DIABETES MELLITUS
     Dosage: 44 U, QD (AVERAGE 44 UNITS /DAY (BASIS AND BOLUS, WHEREAS THE BASIS IS CURRENTLY 27.5 U)
     Route: 058
     Dates: start: 20100101, end: 20120101
  3. POTASSIUM CHLORIDE [Concomitant]
     Indication: PARALYSIS

REACTIONS (2)
  - PARALYSIS [None]
  - CONDITION AGGRAVATED [None]
